FAERS Safety Report 8314541 (Version 5)
Quarter: 2012Q4

REPORT INFORMATION
  Report Type: 
  Country: JP (occurrence: JP)
  Receive Date: 20111228
  Receipt Date: 20121005
  Transmission Date: 20130627
  Serious: Yes (Hospitalization, Other)
  Sender: FDA-Public Use
  Company Number: JP-ABBOTT-11P-087-0881460-00

PATIENT
  Age: 62 None
  Sex: Male
  Weight: 72 kg

DRUGS (8)
  1. HUMIRA [Suspect]
     Indication: PSORIASIS
     Route: 058
     Dates: start: 20110422, end: 20110422
  2. HUMIRA [Suspect]
     Dates: start: 20110506, end: 20110916
  3. CYCLOSPORINE [Suspect]
     Route: 048
     Dates: start: 20110422
  4. CYCLOSPORINE [Suspect]
     Dates: end: 20110520
  5. CYCLOSPORINE [Suspect]
     Route: 048
  6. FEXOFENADINE HYDROCHLORIDE [Concomitant]
     Indication: PRURITUS
     Route: 048
     Dates: start: 20110208
  7. CLOBETASOL PROPIONATE [Concomitant]
     Indication: PSORIASIS
     Route: 061
     Dates: start: 20110208
  8. CALCIPOTRIOL [Concomitant]
     Indication: PSORIASIS
     Route: 061
     Dates: start: 20110208

REACTIONS (3)
  - Aortic aneurysm [Recovering/Resolving]
  - Interstitial lung disease [Recovering/Resolving]
  - Renal impairment [Unknown]
